FAERS Safety Report 24868209 (Version 1)
Quarter: 2025Q1

REPORT INFORMATION
  Report Type: Spontaneous
  Country: US (occurrence: None)
  Receive Date: 20250119
  Receipt Date: 20250119
  Transmission Date: 20250409
  Serious: Yes (unspecified)
  Sender: FDA-CTU
  Company Number: None

PATIENT
  Age: 65 Year
  Sex: Male
  Weight: 121.5 kg

DRUGS (6)
  1. MELOXICAM [Suspect]
     Active Substance: MELOXICAM
     Indication: Joint injury
     Dosage: FREQUENCY : DAILY;?
     Route: 048
     Dates: start: 20241219, end: 20241219
  2. MAGNESIUM [Concomitant]
     Active Substance: MAGNESIUM
  3. VITAMIN D [Concomitant]
     Active Substance: VITAMIN D NOS
  4. DIETARY SUPPLEMENT [Concomitant]
     Active Substance: DIETARY SUPPLEMENT
  5. Preservisioni [Concomitant]
  6. ADVIL DUAL ACTION WITH ACETAMINOPHEN [Concomitant]
     Active Substance: ACETAMINOPHEN\IBUPROFEN

REACTIONS (8)
  - Nausea [None]
  - Vomiting [None]
  - Pruritus [None]
  - Blood pressure increased [None]
  - Dizziness [None]
  - Stomatitis [None]
  - Anxiety [None]
  - Eczema [None]

NARRATIVE: CASE EVENT DATE: 20241219
